FAERS Safety Report 4301574-1 (Version None)
Quarter: 2004Q1

REPORT INFORMATION
  Report Type: 
  Country: None (occurrence: None)
  Receive Date: 20040219
  Receipt Date: 20040209
  Transmission Date: 20041129
  Serious: Yes (Death, Other)
  Sender: FDA-Public Use
  Company Number: US-JNJFOC-20031001878

PATIENT
  Age: 57 Year
  Sex: Male
  Weight: 58.0604 kg

DRUGS (2)
  1. RISPERDAL [Suspect]
     Indication: SCHIZOPHRENIA
     Dosage: 6-9MG AT HOUR OF SLEEP
     Dates: start: 20000202, end: 20030512
  2. AVANDIA [Concomitant]

REACTIONS (2)
  - PULMONARY FIBROSIS [None]
  - WEIGHT DECREASED [None]
